FAERS Safety Report 5341737-X (Version None)
Quarter: 2007Q2

REPORT INFORMATION
  Report Type: 
  Country: None (occurrence: None)
  Receive Date: 20070529
  Receipt Date: 20070529
  Transmission Date: 20071010
  Serious: Yes (Other)
  Sender: FDA-Public Use
  Company Number: None

PATIENT
  Sex: Male
  Weight: 95.2554 kg

DRUGS (1)
  1. ZOLPIDEM [Suspect]
     Indication: SLEEP DISORDER THERAPY
     Dosage: 1 DAY PO
     Route: 048
     Dates: start: 20070525, end: 20070528

REACTIONS (5)
  - EYE SWELLING [None]
  - LIP SWELLING [None]
  - PRURITUS [None]
  - RASH [None]
  - SWOLLEN TONGUE [None]
